FAERS Safety Report 5337174-4 (Version None)
Quarter: 2007Q2

REPORT INFORMATION
  Report Type: 
  Country: None (occurrence: None)
  Receive Date: 20070315
  Receipt Date: 20060814
  Transmission Date: 20071010
  Serious: Yes (Other)
  Sender: FDA-Public Use
  Company Number: PHEH2006US10368

PATIENT
  Age: 22 Year
  Sex: Female

DRUGS (3)
  1. TRILEPTAL [Suspect]
     Indication: CONVULSION
     Dosage: 300 MG BID ; 450 MG BID ; 450 G QAM + 600 MG QPM,
     Dates: start: 20050101, end: 20050401
  2. TRILEPTAL [Suspect]
     Indication: CONVULSION
     Dosage: 300 MG BID ; 450 MG BID ; 450 G QAM + 600 MG QPM,
     Dates: start: 20050401, end: 20060201
  3. TRILEPTAL [Suspect]
     Indication: CONVULSION
     Dosage: 300 MG BID ; 450 MG BID ; 450 G QAM + 600 MG QPM,
     Dates: start: 20060201, end: 20060501

REACTIONS (1)
  - WEIGHT INCREASED [None]
